FAERS Safety Report 14970407 (Version 2)
Quarter: 2018Q3

REPORT INFORMATION
  Report Type: Spontaneous
  Country: JP (occurrence: JP)
  Receive Date: 20180604
  Receipt Date: 20180726
  Transmission Date: 20181010
  Serious: Yes (Hospitalization, Other)
  Sender: FDA-Public Use
  Company Number: JP-BIOTEST PHARMACEUTICALS CORPORATION-JP-2018ADM000021

PATIENT
  Age: 15 Month
  Sex: Male

DRUGS (1)
  1. HUMAN IMMUNOGLOBULIN [Suspect]
     Active Substance: HUMAN IMMUNOGLOBULIN G
     Indication: KAWASAKI^S DISEASE
     Dosage: 2 G/KG
     Route: 042

REACTIONS (2)
  - Pleural effusion [Unknown]
  - Disseminated intravascular coagulation [Unknown]
